FAERS Safety Report 22210162 (Version 1)
Quarter: 2023Q2

REPORT INFORMATION
  Report Type: Report from Study
  Country: US (occurrence: US)
  Receive Date: 20230414
  Receipt Date: 20230414
  Transmission Date: 20230722
  Serious: Yes (Other)
  Sender: FDA-Public Use
  Company Number: US-JNJFOC-20230417206

PATIENT
  Age: 59 Year
  Sex: Female

DRUGS (2)
  1. SPRAVATO [Suspect]
     Active Substance: ESKETAMINE
     Indication: Depression
     Dosage: ^56 MG, 4 TOTAL DOSES^
     Dates: start: 20230304, end: 20230315
  2. SPRAVATO [Suspect]
     Active Substance: ESKETAMINE
     Dosage: RECENT DOSE ON 07-APR-2023?^84 MG, 5 TOTAL DOSES^
     Dates: start: 20230317, end: 20230404

REACTIONS (2)
  - Spinal operation [Unknown]
  - Procedural complication [Unknown]

NARRATIVE: CASE EVENT DATE: 20230315
